FAERS Safety Report 18143923 (Version 1)
Quarter: 2020Q3

REPORT INFORMATION
  Report Type: Spontaneous
  Country: BE (occurrence: BE)
  Receive Date: 20200813
  Receipt Date: 20200813
  Transmission Date: 20201103
  Serious: Yes (Hospitalization, Other)
  Sender: FDA-Public Use
  Company Number: BE-LUPIN PHARMACEUTICALS INC.-2020-04493

PATIENT
  Age: 53 Year
  Sex: Female

DRUGS (14)
  1. INDOMETHACIN SODIUM [Suspect]
     Active Substance: INDOMETHACIN SODIUM
     Indication: KERATITIS
     Dosage: UNK
     Route: 065
  2. GANCICLOVIR. [Concomitant]
     Active Substance: GANCICLOVIR
     Indication: HERPES OPHTHALMIC
     Dosage: UNK
     Route: 061
  3. VALACICLOVIR [Concomitant]
     Active Substance: VALACYCLOVIR HYDROCHLORIDE
     Indication: HERPES OPHTHALMIC
     Dosage: 1500 MILLIGRAM QD
     Route: 048
  4. DOXYCYCLINE. [Suspect]
     Active Substance: DOXYCYCLINE
     Indication: KERATITIS FUNGAL
     Dosage: 200 MILLIGRAM QD
     Route: 065
  5. VORICONAZOLE. [Suspect]
     Active Substance: VORICONAZOLE
     Dosage: UNK (10 MG/ML HOURLY DAY)
     Route: 048
  6. ITRACONAZOLE. [Suspect]
     Active Substance: ITRACONAZOLE
     Indication: KERATITIS FUNGAL
     Dosage: 400 MILLIGRAM, QD
     Route: 048
  7. ITRACONAZOLE. [Suspect]
     Active Substance: ITRACONAZOLE
     Dosage: UNK (0.03 MICRO?G/ML)
     Route: 065
  8. OFLOXACIN. [Concomitant]
     Active Substance: OFLOXACIN
     Indication: KERATITIS
     Dosage: UNK
     Route: 061
  9. VORICONAZOLE. [Suspect]
     Active Substance: VORICONAZOLE
     Indication: KERATITIS FUNGAL
     Dosage: UNK (0.5 MICROGRAM/ML)
     Route: 048
  10. TOBRAMYCIN. [Concomitant]
     Active Substance: TOBRAMYCIN
     Indication: KERATITIS
     Dosage: UNK (HOURLY 14 MG/ML DAY AND NIGHT)
     Route: 061
  11. VORICONAZOLE. [Suspect]
     Active Substance: VORICONAZOLE
     Dosage: UNK (TOPICAL VORICONAZOLE)
     Route: 061
  12. DEXAMETHASONE. [Concomitant]
     Active Substance: DEXAMETHASONE
     Indication: HERPES OPHTHALMIC
     Dosage: UNK
     Route: 061
  13. CEFAZOLIN [Concomitant]
     Active Substance: CEFAZOLIN
     Indication: KERATITIS
     Dosage: UNK (HOURLY 50 MG/ML DAY AND NIGHT)
     Route: 061
  14. MOXIFLOXACIN. [Concomitant]
     Active Substance: MOXIFLOXACIN
     Indication: HERPES OPHTHALMIC
     Dosage: UNK
     Route: 065

REACTIONS (3)
  - Corneal perforation [Recovered/Resolved]
  - Drug ineffective [Unknown]
  - Off label use [Unknown]
